FAERS Safety Report 8536369-6 (Version None)
Quarter: 2012Q2

REPORT INFORMATION
  Report Type: 
  Country: None (occurrence: None)
  Receive Date: 20120412
  Receipt Date: 20060524
  Transmission Date: 20120825
  Serious: Yes (Other)
  Sender: FDA-Public Use
  Company Number: PHEH2006US15657

PATIENT
  Age: 72 Year
  Sex: Female

DRUGS (1)
  1. AREDIA [Suspect]
     Dosage: 90MG QMON IN 500CC OVER 1.5 TO 2 HRS
     Dates: start: 20001003, end: 20020219

REACTIONS (8)
  - INTERVERTEBRAL DISC DEGENERATION [None]
  - INCONTINENCE [None]
  - LUMBAR RADICULOPATHY [None]
  - OSTEONECROSIS OF JAW [None]
  - OSTEOPOROSIS [None]
  - EPIDURAL ANAESTHESIA [None]
  - SPINAL LAMINECTOMY [None]
  - DIVERTICULUM [None]
